FAERS Safety Report 8895079 (Version 1)
Quarter: 2012Q4

REPORT INFORMATION
  Report Type: 
  Country: US (occurrence: US)
  Receive Date: 20121108
  Receipt Date: 20121108
  Transmission Date: 20130627
  Serious: Yes (Other)
  Sender: FDA-Public Use
  Company Number: CHPA2012US022936

PATIENT
  Age: 70 Year
  Sex: Female

DRUGS (1)
  1. MAALOX ANTACID/ANTIGAS MAX LIQ UNKNOWN [Suspect]
     Indication: GASTROOESOPHAGEAL REFLUX DISEASE
     Dosage: Unk, Unk
     Route: 048

REACTIONS (7)
  - Gastritis [Not Recovered/Not Resolved]
  - Gastric disorder [Not Recovered/Not Resolved]
  - Abdominal pain upper [Not Recovered/Not Resolved]
  - Oral discomfort [Recovered/Resolved]
  - Dizziness [Recovered/Resolved]
  - Oropharyngeal pain [Recovered/Resolved]
  - Off label use [Unknown]
